FAERS Safety Report 4986784-2 (Version None)
Quarter: 2006Q2

REPORT INFORMATION
  Report Type: 
  Country: None (occurrence: None)
  Receive Date: 20060428
  Receipt Date: 20051004
  Transmission Date: 20061013
  Serious: Yes (Hospitalization)
  Sender: FDA-Public Use
  Company Number: US-MERCK-0510USA03832

PATIENT
  Age: 59 Year
  Sex: Female
  Weight: 57 kg

DRUGS (4)
  1. VIOXX [Suspect]
     Indication: ARTHRITIS
     Route: 048
     Dates: start: 20001201, end: 20040930
  2. LIPITOR [Concomitant]
     Indication: BLOOD CHOLESTEROL INCREASED
     Route: 065
  3. ADVIL [Concomitant]
     Indication: HEADACHE
     Route: 065
     Dates: start: 20020101
  4. TYLENOL (CAPLET) [Concomitant]
     Indication: HEADACHE
     Route: 065
     Dates: start: 20020101

REACTIONS (10)
  - ANGINA PECTORIS [None]
  - ARTERIOSCLEROSIS [None]
  - ARTHROPATHY [None]
  - CHEST PAIN [None]
  - COSTOCHONDRITIS [None]
  - EAR INFECTION [None]
  - HYPERTENSION [None]
  - MYOCARDIAL INFARCTION [None]
  - ROTATOR CUFF SYNDROME [None]
  - VIRAL RHINITIS [None]
